FAERS Safety Report 4451287-0 (Version None)
Quarter: 2004Q3

REPORT INFORMATION
  Report Type: 
  Country: None (occurrence: None)
  Receive Date: 20040916
  Receipt Date: 20040805
  Transmission Date: 20050211
  Serious: Yes (Death, Hospitalization, Other)
  Sender: FDA-Public Use
  Company Number: PHNU2004DE02744

PATIENT
  Age: 71 Year
  Sex: Female
  Weight: 57 kg

DRUGS (6)
  1. SANDIMMUNE [Suspect]
     Indication: RENAL TRANSPLANT
     Dosage: 150MG/DAY
     Route: 048
     Dates: start: 19970306, end: 20040612
  2. PREDNISOLONE [Suspect]
     Indication: IMMUNOSUPPRESSION
     Dosage: 7.5MG/DAY
     Route: 048
     Dates: start: 19970306, end: 20040612
  3. METOPROLOL [Concomitant]
     Indication: HYPERTENSION
     Dosage: 150 MG DAILY
     Route: 048
  4. FUROSEMIDE [Concomitant]
     Indication: HYPERTENSION
     Dosage: 90 MG DAILY
     Route: 048
  5. PANTOPRAZOLE [Concomitant]
     Indication: PROPHYLAXIS AGAINST GASTROINTESTINAL ULCER
     Dosage: 20 MG DAILY
     Route: 048
  6. PRAVASTATIN [Concomitant]
     Indication: HYPERLIPIDAEMIA
     Dosage: 20 MG DAILY
     Route: 048
     Dates: start: 19970801

REACTIONS (10)
  - BLOOD CREATININE INCREASED [None]
  - DEHYDRATION [None]
  - GRAFT LOSS [None]
  - HYDRONEPHROSIS [None]
  - PYELONEPHRITIS [None]
  - RENAL IMPAIRMENT [None]
  - SHOCK [None]
  - URINARY SEDIMENT PRESENT [None]
  - URINARY TRACT INFECTION [None]
  - UROSEPSIS [None]
